FAERS Safety Report 7808744-6 (Version None)
Quarter: 2011Q4

REPORT INFORMATION
  Report Type: 
  Country: None (occurrence: None)
  Receive Date: 20111007
  Receipt Date: 20110928
  Transmission Date: 20120403
  Serious: Yes (Hospitalization, Other)
  Sender: FDA-Public Use
  Company Number: ACO_26913_2011

PATIENT
  Age: 44 Year
  Sex: Male
  Weight: 95.2 kg

DRUGS (7)
  1. PRAVASTATIN [Concomitant]
  2. TYSABRI [Concomitant]
  3. KEPPRA [Concomitant]
  4. ACTONEL [Concomitant]
  5. AMPYRA [Suspect]
     Indication: GAIT DISTURBANCE
     Dosage: 10 MG, BID, ORAL
     Route: 048
     Dates: start: 20100801, end: 20110730
  6. ASPIRIN [Concomitant]
  7. FLOMAX [Concomitant]

REACTIONS (6)
  - CONVULSION [None]
  - WHITE BLOOD CELL COUNT INCREASED [None]
  - HIP FRACTURE [None]
  - NUCLEAR MAGNETIC RESONANCE IMAGING BRAIN ABNORMAL [None]
  - PYREXIA [None]
  - LOSS OF CONSCIOUSNESS [None]
